FAERS Safety Report 8899497 (Version 1)
Quarter: 2012Q4

REPORT INFORMATION
  Report Type: 
  Country: TR (occurrence: TR)
  Receive Date: 20121109
  Receipt Date: 20121109
  Transmission Date: 20130627
  Serious: Yes (Other)
  Sender: FDA-Public Use
  Company Number: TR-PFIZER INC-2012252933

PATIENT
  Age: 52 Year
  Sex: Female

DRUGS (3)
  1. RELPAX [Suspect]
     Indication: MIGRAINE
     Dosage: UNK
     Dates: start: 2009
  2. TOPAMAX [Concomitant]
     Dosage: UNK
     Dates: start: 2003
  3. TOPAMAX [Concomitant]
     Dosage: UNK
     Dates: start: 2012

REACTIONS (6)
  - Behcet^s syndrome [Unknown]
  - Asthma [Unknown]
  - Varicose vein [Unknown]
  - Meniscus injury [Unknown]
  - Migraine [Unknown]
  - Pain [Unknown]
